FAERS Safety Report 10442365 (Version 4)
Quarter: 2015Q3

REPORT INFORMATION
  Report Type: Spontaneous
  Country: JP (occurrence: JP)
  Receive Date: 20140909
  Receipt Date: 20150930
  Transmission Date: 20151125
  Serious: Yes (Death, Hospitalization, Other)
  Sender: FDA-Public Use
  Company Number: JP-BAYER-2014-108936

PATIENT
  Age: 70 Year
  Sex: Male
  Weight: 56 kg

DRUGS (17)
  1. AMLODIPINE [Concomitant]
     Active Substance: AMLODIPINE BESYLATE
     Dosage: DAILY DOSE 10 MG
     Route: 048
     Dates: start: 20140501, end: 20140714
  2. STIVARGA [Suspect]
     Active Substance: REGORAFENIB
     Indication: COLON CANCER
     Dosage: 80 MG, QD (ON FOR 3 WEEKS AND OFF FOR 1 WEEK)
     Route: 048
     Dates: start: 20140513, end: 20140602
  3. BIOFERMIN [Concomitant]
     Active Substance: BACILLUS SUBTILIS\LACTOBACILLUS ACIDOPHILUS\STREPTOCOCCUS FAECAIS
     Dosage: DAILY DOSE 3 G
     Route: 048
     Dates: start: 20120312, end: 20150115
  4. OXYNORM [Concomitant]
     Active Substance: OXYCODONE HYDROCHLORIDE
     Dosage: DAILY DOSE 5 MG
     Route: 048
  5. ACETAMINOPHEN. [Concomitant]
     Active Substance: ACETAMINOPHEN
     Dosage: DAILY DOSE 1200 MG
     Route: 048
     Dates: start: 20140528, end: 20140909
  6. FENTANYL CITRATE. [Concomitant]
     Active Substance: FENTANYL CITRATE
     Dosage: DAILY DOSE 1 MG
     Route: 062
     Dates: start: 20140613
  7. NOVAMIN [Suspect]
     Active Substance: PROCHLORPERAZINE MALEATE
     Indication: PROPHYLAXIS
     Dosage: DAILY DOSE 15 MG
     Route: 048
     Dates: start: 20130805, end: 201407
  8. RANITIDINE [Concomitant]
     Active Substance: RANITIDINE\RANITIDINE HYDROCHLORIDE
     Dosage: DAILY DOSE 150 MG
     Route: 048
     Dates: start: 20120215, end: 20150108
  9. ELIETEN [Concomitant]
     Active Substance: METOCLOPRAMIDE
     Dosage: DAILY DOSE 15 MG
     Route: 048
  10. OXYCODONE [Concomitant]
     Active Substance: OXYCODONE
     Dosage: DAILY DOSE 20 MG
     Route: 048
     Dates: start: 20140501, end: 20140613
  11. GEFARNATE [Concomitant]
     Active Substance: GEFARNATE
     Dosage: DAILY DOSE 150 MG
     Route: 048
     Dates: start: 20140302, end: 20140806
  12. NORVASC [Suspect]
     Active Substance: AMLODIPINE BESYLATE
     Dosage: UNK
     Route: 048
     Dates: end: 201407
  13. STIVARGA [Suspect]
     Active Substance: REGORAFENIB
     Indication: COLON CANCER
     Dosage: 80 MG, QD (ON FOR 3 WEEKS AND OFF FOR 1 WEEK)
     Route: 048
     Dates: start: 20140623, end: 20140714
  14. SHINLUCK [Concomitant]
     Active Substance: SODIUM PICOSULFATE
     Dosage: UNK
     Route: 048
     Dates: start: 20140501
  15. LOXOPROFEN SODIUM [Concomitant]
     Active Substance: LOXOPROFEN SODIUM
     Dosage: DAILY DOSE 180 MG
     Route: 048
  16. DIOVAN [Concomitant]
     Active Substance: VALSARTAN
     Dosage: DAILY DOSE 80 MG
     Route: 048
     Dates: start: 20120220, end: 20150115
  17. MAGMITT [Concomitant]
     Active Substance: MAGNESIUM OXIDE
     Dosage: DAILY DOSE 1500 MG
     Route: 048
     Dates: start: 20130223, end: 20150115

REACTIONS (7)
  - Malaise [Recovering/Resolving]
  - Nausea [Recovering/Resolving]
  - Colon cancer [Fatal]
  - Erythema [Recovered/Resolved]
  - Papule [Recovered/Resolved]
  - Toxic skin eruption [Recovered/Resolved]
  - Decreased appetite [Recovering/Resolving]

NARRATIVE: CASE EVENT DATE: 20140604
